FAERS Safety Report 6204227-8 (Version None)
Quarter: 2009Q2

REPORT INFORMATION
  Report Type: 
  Country: None (occurrence: None)
  Receive Date: 20090526
  Receipt Date: 20090526
  Transmission Date: 20091009
  Serious: No
  Sender: FDA-Public Use
  Company Number: None

PATIENT
  Age: 31 Year
  Sex: Female
  Weight: 48.0813 kg

DRUGS (1)
  1. CHANTIX [Suspect]
     Indication: SMOKING CESSATION THERAPY
     Dates: start: 20090305, end: 20090428

REACTIONS (8)
  - AFFECTIVE DISORDER [None]
  - DRUG DEPENDENCE [None]
  - EMOTIONAL DISORDER [None]
  - FEELING ABNORMAL [None]
  - IRRITABILITY [None]
  - PERSONALITY CHANGE [None]
  - SOCIAL PROBLEM [None]
  - WITHDRAWAL SYNDROME [None]
